FAERS Safety Report 6235260-8 (Version None)
Quarter: 2009Q2

REPORT INFORMATION
  Report Type: 
  Country: None (occurrence: None)
  Receive Date: 20090618
  Receipt Date: 20090608
  Transmission Date: 20091009
  Serious: Yes (Other)
  Sender: FDA-Public Use
  Company Number: US-GILEAD-2009-0022335

PATIENT
  Age: 28 Year
  Sex: Female

DRUGS (3)
  1. TRUVADA [Suspect]
     Indication: HIV INFECTION
     Route: 048
     Dates: start: 20080801
  2. NORVIR [Concomitant]
     Route: 048
     Dates: start: 20080801
  3. REYATAZ [Concomitant]
     Route: 054
     Dates: start: 20080801

REACTIONS (1)
  - BLIGHTED OVUM [None]
